FAERS Safety Report 5190849-2 (Version None)
Quarter: 2006Q4

REPORT INFORMATION
  Report Type: 
  Country: None (occurrence: None)
  Receive Date: 20061222
  Receipt Date: 20061214
  Transmission Date: 20070319
  Serious: Yes (Other)
  Sender: FDA-Public Use
  Company Number: US-ROCHE-475146

PATIENT
  Sex: Female

DRUGS (2)
  1. ACCUTANE [Suspect]
     Indication: DRUG USE FOR UNKNOWN INDICATION
     Dosage: REGIMEN #1
     Route: 065
     Dates: start: 20051015, end: 20060315
  2. ACCUTANE [Suspect]
     Dosage: REGIMEN #2
     Route: 065
     Dates: start: 20060315, end: 20061211

REACTIONS (1)
  - SELF INJURIOUS BEHAVIOUR [None]
